FAERS Safety Report 12653984 (Version 1)
Quarter: 2016Q3

REPORT INFORMATION
  Report Type: Spontaneous
  Country: US (occurrence: US)
  Receive Date: 20160816
  Receipt Date: 20160816
  Transmission Date: 20161109
  Serious: No
  Sender: FDA-Public Use
  Company Number: US-009507513-1607USA010498

PATIENT
  Age: 70 Year
  Sex: Male

DRUGS (1)
  1. BELSOMRA [Suspect]
     Active Substance: SUVOREXANT
     Indication: INSOMNIA
     Dosage: ONE HALF OF A 15 MG TABLET, DAILY
     Route: 048
     Dates: start: 201606, end: 201606

REACTIONS (4)
  - Wrong technique in product usage process [Unknown]
  - Movement disorder [Recovered/Resolved]
  - Drug prescribing error [Unknown]
  - Drug ineffective [Recovered/Resolved]

NARRATIVE: CASE EVENT DATE: 201606
